FAERS Safety Report 18628960 (Version 1)
Quarter: 2020Q4

REPORT INFORMATION
  Report Type: Spontaneous
  Country: US (occurrence: US)
  Receive Date: 20201217
  Receipt Date: 20201217
  Transmission Date: 20210114
  Serious: Yes (Other)
  Sender: FDA-Public Use
  Company Number: US-PFIZER INC-2020480843

PATIENT
  Age: 31 Year
  Sex: Female

DRUGS (1)
  1. EUCRISA [Suspect]
     Active Substance: CRISABOROLE
     Indication: HAND DERMATITIS
     Dosage: UNK, 2X/DAY

REACTIONS (8)
  - Pain in extremity [Unknown]
  - Rash papular [Unknown]
  - Skin lesion [Unknown]
  - Skin exfoliation [Unknown]
  - Condition aggravated [Unknown]
  - Off label use [Unknown]
  - Hypersensitivity [Unknown]
  - Rash erythematous [Unknown]
